FAERS Safety Report 4817275-7 (Version None)
Quarter: 2005Q3

REPORT INFORMATION
  Report Type: 
  Country: None (occurrence: None)
  Receive Date: 20050929
  Receipt Date: 20050606
  Transmission Date: 20060218
  Serious: No
  Sender: FDA-Public Use
  Company Number: 05P-163-0302387-00

PATIENT
  Age: 44 Year
  Sex: Male
  Weight: 88.4514 kg

DRUGS (11)
  1. HUMIRA [Suspect]
     Indication: RHEUMATOID ARTHRITIS
     Dosage: 40 MG, 1 IN 2 WK, SUBCUTANEOUS
     Route: 058
     Dates: start: 20040601, end: 20050301
  2. LANSOPRAZOLE [Concomitant]
  3. PREDNISONE [Concomitant]
  4. LEVOTHYROXINE SODIUM [Concomitant]
  5. METFORMIN HYDROCHLORIDE [Concomitant]
  6. GLIBOMET [Concomitant]
  7. FLUOXETINE HYDROCHLORIDE [Concomitant]
  8. PHENTERMINE HYDROCHLORIDE [Concomitant]
  9. ZOLPIDEM TARTRATE [Concomitant]
  10. DIAZEPAM [Concomitant]
  11. VICODIN [Concomitant]

REACTIONS (1)
  - NASAL CONGESTION [None]
